FAERS Safety Report 8197370-8 (Version None)
Quarter: 2012Q1

REPORT INFORMATION
  Report Type: 
  Country: None (occurrence: None)
  Receive Date: 20120309
  Receipt Date: 20120305
  Transmission Date: 20120608
  Serious: Yes (Hospitalization)
  Sender: FDA-Public Use
  Company Number: US-BAYER-2012-022772

PATIENT
  Sex: Male

DRUGS (1)
  1. NIFEDIPINE [Suspect]
     Indication: ANEURYSM
     Dosage: UNK
     Dates: start: 20111201

REACTIONS (5)
  - HYPERHIDROSIS [None]
  - PAIN [None]
  - HEART RATE DECREASED [None]
  - BLOOD PRESSURE INCREASED [None]
  - COLD SWEAT [None]
